FAERS Safety Report 6104595-1 (Version None)
Quarter: 2009Q1

REPORT INFORMATION
  Report Type: 
  Country: None (occurrence: None)
  Receive Date: 20090305
  Receipt Date: 20090227
  Transmission Date: 20090719
  Serious: Yes (Other)
  Sender: FDA-Public Use
  Company Number: US-MERCK-0901USA01557

PATIENT
  Age: 58 Year
  Sex: Male

DRUGS (4)
  1. PROSCAR [Suspect]
     Route: 048
     Dates: end: 20090101
  2. PROSCAR [Suspect]
     Route: 048
     Dates: start: 20090101, end: 20090108
  3. PROSCAR [Suspect]
     Route: 048
  4. ULTRAM [Concomitant]
     Route: 065

REACTIONS (3)
  - PROSTATE CANCER [None]
  - URINE FLOW DECREASED [None]
  - WRONG TECHNIQUE IN DRUG USAGE PROCESS [None]
